FAERS Safety Report 16057345 (Version 1)
Quarter: 2019Q1

REPORT INFORMATION
  Report Type: Spontaneous
  Country: US (occurrence: US)
  Receive Date: 20190311
  Receipt Date: 20190311
  Transmission Date: 20190418
  Serious: No
  Sender: FDA-Public Use
  Company Number: US-PFIZER INC-2019102113

PATIENT
  Age: 65 Year
  Sex: Female

DRUGS (5)
  1. VFEND [Suspect]
     Active Substance: VORICONAZOLE
     Dosage: 300 MG, DAILY [TAKE 1 TABLET (200 MG) EVERY MORNING, AND 1/2 TABLET (100 MG) EVERY EVENING]
     Dates: start: 20190131, end: 20190208
  2. VFEND [Suspect]
     Active Substance: VORICONAZOLE
     Dosage: 300 MG, DAILY [TAKE 1 TABLET (200 MG) EVERY MORNING AND 1/2 TABLET (100 MG) EVERY EVENING]
     Route: 048
     Dates: start: 20190131
  3. VFEND [Suspect]
     Active Substance: VORICONAZOLE
     Dosage: 200 MG, UNK
     Route: 048
     Dates: start: 20190128
  4. VFEND [Suspect]
     Active Substance: VORICONAZOLE
     Dosage: 100 MG, 2X/DAY [TAKE 2 TABLETS (100 MG) BY MOUTH 2 (TWO) TIMES A DAY]
     Route: 048
     Dates: start: 20190208
  5. VFEND [Suspect]
     Active Substance: VORICONAZOLE
     Dosage: 100 MG, 2X/DAY [TAKE 2 TABLET 2 TIMES DAILY]

REACTIONS (2)
  - Abnormal dreams [Recovering/Resolving]
  - Confusional state [Recovering/Resolving]
